FAERS Safety Report 9341868 (Version 2)
Quarter: 2013Q3

REPORT INFORMATION
  Report Type: Spontaneous
  Country: JP (occurrence: JP)
  Receive Date: 20130611
  Receipt Date: 20130701
  Transmission Date: 20140515
  Serious: Yes (Other)
  Sender: FDA-Public Use
  Company Number: JP-PFIZER INC-2013175634

PATIENT
  Age: 50 Year
  Sex: Female

DRUGS (4)
  1. LYRICA [Suspect]
     Indication: PAIN
     Dosage: 25 MG/DAY
     Route: 048
     Dates: start: 201301, end: 2013
  2. JUVELA [Suspect]
  3. METHYCOBAL [Suspect]
  4. LOXONIN [Suspect]

REACTIONS (1)
  - Haemorrhage subcutaneous [Unknown]
